FAERS Safety Report 17812793 (Version 4)
Quarter: 2021Q3

REPORT INFORMATION
  Report Type: Report from Study
  Country: None (occurrence: CO)
  Receive Date: 20200521
  Receipt Date: 20210906
  Transmission Date: 20211014
  Serious: Yes (Hospitalization, Other)
  Sender: FDA-Public Use
  Company Number: CO-ABBVIE-20K-036-3413496-00

PATIENT
  Age: 36 Year
  Sex: Female
  Weight: 63 kg

DRUGS (3)
  1. HUMIRA [Suspect]
     Active Substance: ADALIMUMAB
     Indication: ANKYLOSING SPONDYLITIS
     Route: 058
     Dates: start: 20170808
  2. HUMIRA [Suspect]
     Active Substance: ADALIMUMAB
     Route: 058
  3. HUMIRA [Suspect]
     Active Substance: ADALIMUMAB
     Indication: ANKYLOSING SPONDYLITIS
     Route: 058
     Dates: end: 20210209

REACTIONS (14)
  - Loss of consciousness [Recovering/Resolving]
  - Eye inflammation [Recovering/Resolving]
  - Eye pain [Recovering/Resolving]
  - Rash [Recovering/Resolving]
  - Suicidal ideation [Not Recovered/Not Resolved]
  - Malaise [Not Recovered/Not Resolved]
  - Lip swelling [Recovering/Resolving]
  - Depression [Not Recovered/Not Resolved]
  - Abdominal pain upper [Recovering/Resolving]
  - Amnesia [Not Recovered/Not Resolved]
  - Anxiety [Not Recovered/Not Resolved]
  - Stress [Not Recovered/Not Resolved]
  - Back pain [Recovering/Resolving]
  - Insomnia [Not Recovered/Not Resolved]

NARRATIVE: CASE EVENT DATE: 2018
